FAERS Safety Report 4331683-2 (Version None)
Quarter: 2004Q2

REPORT INFORMATION
  Report Type: 
  Country: None (occurrence: None)
  Receive Date: 20040401
  Receipt Date: 20040401
  Transmission Date: 20050107
  Serious: Yes (Other)
  Sender: FDA-Public Use
  Company Number: None

PATIENT
  Age: 38 Year
  Sex: Male

DRUGS (1)
  1. WELLBUTRIN XL [Suspect]
     Indication: DEPRESSION
     Dosage: ONE DOSE PO QD
     Route: 048
     Dates: start: 20040314, end: 20040323

REACTIONS (2)
  - RASH MACULAR [None]
  - RASH PRURITIC [None]
